FAERS Safety Report 4661506-3 (Version None)
Quarter: 2005Q2

REPORT INFORMATION
  Report Type: 
  Country: None (occurrence: None)
  Receive Date: 20050511
  Receipt Date: 20050511
  Transmission Date: 20051028
  Serious: Yes (Hospitalization)
  Sender: FDA-Public Use
  Company Number: None

PATIENT
  Age: 89 Year
  Sex: Female
  Weight: 64.7 kg

DRUGS (1)
  1. DIGOXIN [Suspect]
     Indication: CARDIAC FAILURE CONGESTIVE
     Dosage: 0.0625MG    DAILY   ORAL
     Route: 048

REACTIONS (6)
  - BLOOD CREATININE INCREASED [None]
  - CARDIOACTIVE DRUG LEVEL INCREASED [None]
  - FEELING ABNORMAL [None]
  - NAUSEA [None]
  - ORAL INTAKE REDUCED [None]
  - SINUS BRADYCARDIA [None]
